FAERS Safety Report 14613895 (Version 2)
Quarter: 2018Q2

REPORT INFORMATION
  Report Type: Spontaneous
  Country: DE (occurrence: DE)
  Receive Date: 20180308
  Receipt Date: 20180412
  Transmission Date: 20180711
  Serious: Yes (Hospitalization, Other)
  Sender: FDA-Public Use
  Company Number: DE-TEVA-2018-DE-863334

PATIENT
  Age: 56 Year
  Sex: Female

DRUGS (2)
  1. JODID 100 MICROG MERCK [Concomitant]
     Route: 048
  2. METOPROLOL-RATIOPHARM SUCCINAT 95 MG RETARDTABLETTEN [Suspect]
     Active Substance: METOPROLOL SUCCINATE
     Indication: HYPERTENSION
     Route: 048
     Dates: start: 1998

REACTIONS (3)
  - Peripheral artery occlusion [Unknown]
  - Peripheral coldness [Unknown]
  - Gait disturbance [Unknown]

NARRATIVE: CASE EVENT DATE: 2013
